FAERS Safety Report 9580397 (Version 4)
Quarter: 2013Q4

REPORT INFORMATION
  Report Type: Spontaneous
  Country: US (occurrence: US)
  Receive Date: 20131002
  Receipt Date: 20131127
  Transmission Date: 20140711
  Serious: Yes (Death, Other)
  Sender: FDA-Public Use
  Company Number: US-TEVA-434625USA

PATIENT
  Sex: Female

DRUGS (8)
  1. ACTIQ [Suspect]
     Indication: BREAKTHROUGH PAIN
     Route: 002
     Dates: end: 2013
  2. ACTIQ [Suspect]
     Dates: start: 2013, end: 2013
  3. ACTIQ [Suspect]
     Dates: start: 2013
  4. OXYCONTIN [Concomitant]
     Indication: CANCER PAIN
  5. OXY IR [Concomitant]
  6. DURAGESIC [Concomitant]
  7. METHADONE [Concomitant]
  8. VICODIN [Concomitant]

REACTIONS (7)
  - Malignant neoplasm progression [Not Recovered/Not Resolved]
  - Myocardial infarction [Unknown]
  - Cardiac arrest [Unknown]
  - Systemic lupus erythematosus [Unknown]
  - Death [Fatal]
  - Pain [Unknown]
  - Drug ineffective [Unknown]
